FAERS Safety Report 9859581 (Version 3)
Quarter: 2014Q2

REPORT INFORMATION
  Report Type: Not Available
  Country: US (occurrence: US)
  Receive Date: 20140131
  Receipt Date: 20140508
  Transmission Date: 20141212
  Serious: Yes (Hospitalization)
  Sender: FDA-Public Use
  Company Number: US-VIROPHARMA INCORPORATED-20140120CINRY5685

PATIENT
  Age: 31 Year
  Sex: Female
  Weight: 69.46 kg

DRUGS (6)
  1. CINRYZE (C1 ESTERASE INHIBITOR (HUMAN)) [Suspect]
     Indication: HEREDITARY ANGIOEDEMA
     Dosage: UNKNOWN
     Route: 042
     Dates: start: 2011
  2. DILAUDID [Concomitant]
     Indication: PAIN MANAGEMENT
     Route: 048
  3. OXYCODONE [Concomitant]
     Indication: PAIN MANAGEMENT
     Route: 048
  4. DANAZOL [Concomitant]
     Indication: HEREDITARY ANGIOEDEMA
     Route: 048
     Dates: start: 201401
  5. FIRAZYR [Concomitant]
     Indication: HEREDITARY ANGIOEDEMA
     Route: 058
  6. ATARAX [Concomitant]
     Indication: PRODUCT USED FOR UNKNOWN INDICATION
     Route: 048

REACTIONS (7)
  - Deep vein thrombosis [Recovering/Resolving]
  - Infection [Unknown]
  - Device related infection [Recovered/Resolved]
  - Staphylococcal infection [Recovered/Resolved]
  - Cardiac infection [Recovered/Resolved]
  - Sepsis [Recovered/Resolved]
  - Central venous catheter removal [Recovered/Resolved]
